FAERS Safety Report 9912953 (Version 1)
Quarter: 2014Q1

REPORT INFORMATION
  Report Type: Spontaneous
  Country: US (occurrence: None)
  Receive Date: 20140218
  Receipt Date: 20140218
  Transmission Date: 20141002
  Serious: Yes (Life-Threatening)
  Sender: FDA-Public Use
  Company Number: None

PATIENT
  Age: 79 Year
  Sex: Male
  Weight: 79.4 kg

DRUGS (1)
  1. HEPARIN [Suspect]
     Dates: start: 20131204, end: 20131214

REACTIONS (5)
  - Peripheral coldness [None]
  - Pulse absent [None]
  - Skin discolouration [None]
  - Thrombocytopenia [None]
  - Anti-platelet antibody positive [None]
